FAERS Safety Report 5490353-8 (Version None)
Quarter: 2007Q4

REPORT INFORMATION
  Report Type: 
  Country: None (occurrence: None)
  Receive Date: 20071019
  Receipt Date: 20071009
  Transmission Date: 20080405
  Serious: Yes (Death, Life-Threatening, Hospitalization)
  Sender: FDA-Public Use
  Company Number: AR-NOVOPROD-265524

PATIENT

DRUGS (6)
  1. NOVOSEVEN [Suspect]
     Indication: HAEMORRHAGE
     Dosage: 90 UG/KG, QD
     Route: 042
     Dates: start: 20060106, end: 20060106
  2. EPINEPHRINE [Concomitant]
  3. FENTANYL [Concomitant]
  4. PANCURONIUM [Concomitant]
  5. MEROPENEM [Concomitant]
  6. VANCOMYCIN [Concomitant]

REACTIONS (1)
  - CEREBRAL ARTERY THROMBOSIS [None]
